FAERS Safety Report 19109999 (Version 1)
Quarter: 2021Q2

REPORT INFORMATION
  Report Type: Spontaneous
  Country: AT (occurrence: AT)
  Receive Date: 20210408
  Receipt Date: 20210408
  Transmission Date: 20210717
  Serious: Yes (Other)
  Sender: FDA-Public Use
  Company Number: AT-ASTRAZENECA-2021A244696

PATIENT
  Age: 57 Year
  Sex: Male

DRUGS (18)
  1. TEMESTA [LORAZEPAM] [Concomitant]
     Active Substance: LORAZEPAM
     Dosage: 1.5MG UNKNOWN
     Route: 065
     Dates: start: 20201204, end: 20201214
  2. TEMESTA [LORAZEPAM] [Concomitant]
     Active Substance: LORAZEPAM
     Dosage: 5.0MG UNKNOWN
     Route: 065
     Dates: start: 20201102, end: 20201103
  3. LAMOTRIGIN [Concomitant]
     Active Substance: LAMOTRIGINE
     Dosage: 150.0MG UNKNOWN
     Route: 065
     Dates: start: 20201210
  4. LAMOTRIGIN [Concomitant]
     Active Substance: LAMOTRIGINE
     Dosage: 50.0MG UNKNOWN
     Route: 065
     Dates: start: 20201114, end: 20201124
  5. VENLAFAXIN [Suspect]
     Active Substance: VENLAFAXINE HYDROCHLORIDE
     Dosage: 75.0MG UNKNOWN
     Route: 065
     Dates: start: 20201108, end: 20201112
  6. TEMESTA [LORAZEPAM] [Concomitant]
     Active Substance: LORAZEPAM
     Dosage: 1.0MG UNKNOWN
     Route: 065
     Dates: start: 20201111, end: 20201111
  7. VENLAFAXIN [Suspect]
     Active Substance: VENLAFAXINE HYDROCHLORIDE
     Dosage: 37.5MG UNKNOWN
     Route: 065
     Dates: start: 20201106, end: 20201107
  8. TEMESTA [LORAZEPAM] [Concomitant]
     Active Substance: LORAZEPAM
     Dosage: 1.25MG UNKNOWN
     Route: 065
     Dates: start: 20201106, end: 20201110
  9. MIRTAZAPIN [Concomitant]
     Active Substance: MIRTAZAPINE
     Dosage: 30.0MG UNKNOWN
     Route: 065
  10. SEROQUEL XR [Suspect]
     Active Substance: QUETIAPINE FUMARATE
     Dosage: 100.0MG UNKNOWN
     Route: 048
     Dates: start: 20201102, end: 20201122
  11. TEMESTA [LORAZEPAM] [Concomitant]
     Active Substance: LORAZEPAM
     Dosage: 2.0MG UNKNOWN
     Route: 065
     Dates: start: 20201202, end: 20201203
  12. LAMOTRIGIN [Concomitant]
     Active Substance: LAMOTRIGINE
     Dosage: 25.0MG UNKNOWN
     Route: 065
     Dates: start: 20201105, end: 20201113
  13. RISPERDAL [Suspect]
     Active Substance: RISPERIDONE
     Dosage: 4.0MG UNKNOWN
     Route: 065
     Dates: start: 20201107, end: 20201112
  14. TEMESTA [LORAZEPAM] [Concomitant]
     Active Substance: LORAZEPAM
     Dosage: 1.0MG UNKNOWN
     Route: 065
     Dates: start: 20201215
  15. RISPERDAL [Suspect]
     Active Substance: RISPERIDONE
     Dosage: 2.5MG UNKNOWN
     Route: 065
     Dates: start: 20201106, end: 20201106
  16. TEMESTA [LORAZEPAM] [Concomitant]
     Active Substance: LORAZEPAM
     Dosage: 2.5MG UNKNOWN
     Route: 065
     Dates: start: 20201112, end: 20201201
  17. LAMOTRIGIN [Concomitant]
     Active Substance: LAMOTRIGINE
     Dosage: 100.0MG UNKNOWN
     Route: 065
     Dates: start: 20201125, end: 20201209
  18. TEMESTA [LORAZEPAM] [Concomitant]
     Active Substance: LORAZEPAM
     Dosage: 2.5MG UNKNOWN
     Route: 065
     Dates: start: 20201104, end: 20201105

REACTIONS (1)
  - Ventricular extrasystoles [Recovered/Resolved]

NARRATIVE: CASE EVENT DATE: 20201112
